FAERS Safety Report 4995376-0 (Version None)
Quarter: 2006Q2

REPORT INFORMATION
  Report Type: 
  Country: None (occurrence: None)
  Receive Date: 20060503
  Receipt Date: 20060419
  Transmission Date: 20061013
  Serious: No
  Sender: FDA-Public Use
  Company Number: 27

PATIENT
  Age: 48 Year
  Sex: Female

DRUGS (2)
  1. TRIAZ PADS 6% BENZOYL PEROXIDE [Suspect]
     Indication: ACNE
     Dosage: 6 % TP
     Route: 061
     Dates: start: 20060409, end: 20060409
  2. MULTIVITAMIN [Concomitant]

REACTIONS (3)
  - ACCIDENTAL EXPOSURE [None]
  - BURNING SENSATION [None]
  - HEART RATE INCREASED [None]
